FAERS Safety Report 13537959 (Version 2)
Quarter: 2017Q2

REPORT INFORMATION
  Report Type: Report from Study
  Country: US (occurrence: US)
  Receive Date: 20170511
  Receipt Date: 20170525
  Transmission Date: 20170830
  Serious: Yes (Death, Other)
  Sender: FDA-Public Use
  Company Number: US-AMGEN-USASL2017071260

PATIENT
  Age: 57 Year
  Sex: Female
  Weight: 80.73 kg

DRUGS (4)
  1. AVASTIN [Concomitant]
     Active Substance: BEVACIZUMAB
     Indication: LUNG CANCER METASTATIC
     Dosage: UNK
     Dates: start: 20170116
  2. ALIMTA [Concomitant]
     Active Substance: PEMETREXED DISODIUM
     Indication: LUNG CANCER METASTATIC
     Dosage: UNK
     Dates: start: 20170116, end: 20170116
  3. CARBOPLATIN. [Concomitant]
     Active Substance: CARBOPLATIN
     Indication: LUNG CANCER METASTATIC
     Dosage: UNK
     Dates: start: 20170116
  4. NEULASTA [Suspect]
     Active Substance: PEGFILGRASTIM
     Indication: PROPHYLAXIS
     Dosage: 6 MG, UNK
     Route: 065
     Dates: start: 20170116, end: 20170116

REACTIONS (5)
  - Condition aggravated [Fatal]
  - Fatigue [Unknown]
  - Metastases to meninges [Fatal]
  - Radiation fibrosis [Unknown]
  - Oedema peripheral [Unknown]

NARRATIVE: CASE EVENT DATE: 201702
